FAERS Safety Report 6259777-5 (Version None)
Quarter: 2009Q3

REPORT INFORMATION
  Report Type: 
  Country: None (occurrence: None)
  Receive Date: 20090708
  Receipt Date: 20090630
  Transmission Date: 20100115
  Serious: Yes (Other)
  Sender: FDA-Public Use
  Company Number: PHHY2009DE27345

PATIENT
  Age: 51 Year
  Sex: Male

DRUGS (3)
  1. IMATINIB MESYLATE [Suspect]
     Indication: GASTROINTESTINAL STROMAL TUMOUR
     Dosage: 400 MG/DAY
     Dates: start: 20030401
  2. IMATINIB MESYLATE [Suspect]
     Dosage: 200 MG/DAY
  3. IMATINIB MESYLATE [Suspect]
     Dosage: 100 MG/DAY

REACTIONS (1)
  - TUMOUR LYSIS SYNDROME [None]
